FAERS Safety Report 19530043 (Version 1)
Quarter: 2021Q3

REPORT INFORMATION
  Report Type: Spontaneous
  Country: CA (occurrence: CA)
  Receive Date: 20210713
  Receipt Date: 20210713
  Transmission Date: 20211014
  Serious: Yes (Death, Other)
  Sender: FDA-Public Use
  Company Number: NVSC2021CA152361

PATIENT
  Age: 74 Year
  Sex: Female

DRUGS (12)
  1. PERINDOPRIL ERBUMINE. [Concomitant]
     Active Substance: PERINDOPRIL ERBUMINE
     Indication: PRODUCT USED FOR UNKNOWN INDICATION
     Dosage: 20 MG, QD
     Route: 065
  2. VOLTAREN EMULGEL [Suspect]
     Active Substance: DICLOFENAC DIETHYLAMINE
     Indication: PRODUCT USED FOR UNKNOWN INDICATION
     Dosage: 2.32 %, BID
     Route: 061
  3. EURO D [Concomitant]
     Indication: PRODUCT USED FOR UNKNOWN INDICATION
     Dosage: 1000.0 IU, QD
     Route: 048
  4. PROLIA [Concomitant]
     Active Substance: DENOSUMAB
     Indication: PRODUCT USED FOR UNKNOWN INDICATION
     Dosage: 60 MG (UNK (PRE FILLED SYRINGE) (SOLUTION SUBCUTANEOUS))
     Route: 058
  5. SANDOSTATIN [Suspect]
     Active Substance: OCTREOTIDE ACETATE
  6. SANDOSTATIN [Suspect]
     Active Substance: OCTREOTIDE ACETATE
     Indication: NEUROENDOCRINE TUMOUR
     Dosage: 100 UG, BID
     Route: 058
  7. ATORVASTATIN CALCIUM. [Suspect]
     Active Substance: ATORVASTATIN CALCIUM
     Indication: PRODUCT USED FOR UNKNOWN INDICATION
     Dosage: 20 MG, QD
     Route: 048
  8. SANDOSTATIN LAR DEPOT [Suspect]
     Active Substance: OCTREOTIDE ACETATE
     Indication: NEUROENDOCRINE TUMOUR
     Dosage: 20 MG, QMO
     Route: 030
  9. AMLODIPINE BESILATE [Suspect]
     Active Substance: AMLODIPINE BESYLATE
     Indication: PRODUCT USED FOR UNKNOWN INDICATION
     Dosage: 5 MG, QD
     Route: 048
  10. SANDOSTATIN [Suspect]
     Active Substance: OCTREOTIDE ACETATE
  11. ACETAMINOPHEN. [Concomitant]
     Active Substance: ACETAMINOPHEN
     Indication: PRODUCT USED FOR UNKNOWN INDICATION
     Dosage: 500 MG, CYCLIC
     Route: 048
  12. DICYCLOMINE HYDROCHLORIDE. [Concomitant]
     Active Substance: DICYCLOMINE HYDROCHLORIDE
     Indication: PRODUCT USED FOR UNKNOWN INDICATION
     Dosage: 10 MG, BID
     Route: 048

REACTIONS (22)
  - Erythema [Fatal]
  - Fibromyalgia [Fatal]
  - Sinusitis [Fatal]
  - Arthralgia [Fatal]
  - Blood pressure systolic increased [Fatal]
  - Back pain [Fatal]
  - Injection site reaction [Fatal]
  - Discharge [Fatal]
  - Osteoarthritis [Fatal]
  - Death [Fatal]
  - Parotitis [Fatal]
  - Eczema [Fatal]
  - Skin lesion [Fatal]
  - Arthropod bite [Fatal]
  - Acne [Fatal]
  - Neck pain [Fatal]
  - Skin induration [Fatal]
  - Rash [Fatal]
  - Pruritus [Fatal]
  - Needle issue [Fatal]
  - Bronchitis [Fatal]
  - Peripheral swelling [Fatal]
